FAERS Safety Report 7269658-6 (Version None)
Quarter: 2011Q1

REPORT INFORMATION
  Report Type: 
  Country: None (occurrence: None)
  Receive Date: 20110202
  Receipt Date: 20110126
  Transmission Date: 20110831
  Serious: Yes (Hospitalization)
  Sender: FDA-Public Use
  Company Number: US-BAXTER-2011BH002201

PATIENT
  Age: 52 Year
  Sex: Male

DRUGS (4)
  1. GAMMAGARD LIQUID [Suspect]
     Indication: PRODUCT USED FOR UNKNOWN INDICATION
     Route: 042
     Dates: start: 20110114, end: 20110114
  2. GAMMAGARD LIQUID [Suspect]
     Route: 042
     Dates: start: 20110114, end: 20110114
  3. GAMMAGARD LIQUID [Suspect]
     Route: 042
     Dates: start: 20070301
  4. PREDNISONE [Concomitant]
     Indication: PREMEDICATION
     Route: 048
     Dates: start: 20110114, end: 20110114

REACTIONS (1)
  - CEREBROVASCULAR ACCIDENT [None]
